FAERS Safety Report 7395524 (Version 29)
Quarter: 2019Q4

REPORT INFORMATION
  Report Type: Report from Study
  Country: CA (occurrence: CA)
  Receive Date: 20100521
  Receipt Date: 20191216
  Transmission Date: 20200122
  Serious: Yes (Hospitalization, Other)
  Sender: FDA-Public Use
  Company Number: PHHY2009CA45320

PATIENT
  Age: 39 Year
  Sex: Female

DRUGS (6)
  1. SANDOSTATIN LAR DEPOT [Suspect]
     Active Substance: OCTREOTIDE ACETATE
     Indication: CARCINOID TUMOUR OF THE GASTROINTESTINAL TRACT
     Dosage: 40 MG, EVERY 4 WEEKS
     Route: 030
     Dates: start: 20081210
  2. SANDOSTATIN LAR DEPOT [Suspect]
     Active Substance: OCTREOTIDE ACETATE
     Dosage: UNK
     Route: 065
  3. SANDOSTATIN LAR DEPOT [Suspect]
     Active Substance: OCTREOTIDE ACETATE
     Dosage: UNK
     Route: 065
  4. SANDOSTATIN LAR DEPOT [Suspect]
     Active Substance: OCTREOTIDE ACETATE
     Dosage: 50 MG, EVERY 4 WEEKS
     Route: 030
  5. SANDOSTATIN LAR DEPOT [Suspect]
     Active Substance: OCTREOTIDE ACETATE
     Dosage: 50 MG, QMO
     Route: 030
  6. SANDOSTATIN LAR DEPOT [Suspect]
     Active Substance: OCTREOTIDE ACETATE
     Dosage: 60 MG, EVERY 4 WEEKS
     Route: 030

REACTIONS (42)
  - Tremor [Unknown]
  - Uterine leiomyoma [Unknown]
  - Metrorrhagia [Unknown]
  - Nausea [Unknown]
  - Abdominal distension [Unknown]
  - Infection [Unknown]
  - Neck pain [Unknown]
  - Discomfort [Unknown]
  - Erythema [Recovered/Resolved]
  - Malaise [Unknown]
  - Incorrect dose administered [Unknown]
  - Respiratory disorder [Unknown]
  - Musculoskeletal pain [Unknown]
  - Flushing [Unknown]
  - Musculoskeletal stiffness [Unknown]
  - Wheezing [Unknown]
  - Urticaria [Unknown]
  - Cervix disorder [Unknown]
  - Fatigue [Unknown]
  - Injection site mass [Recovered/Resolved]
  - Abdominal pain upper [Unknown]
  - Hyperhidrosis [Unknown]
  - Injection site erythema [Recovered/Resolved]
  - Pyrexia [Recovering/Resolving]
  - Needle issue [Unknown]
  - Dyspnoea [Unknown]
  - Carcinoid heart disease [Unknown]
  - Myalgia [Unknown]
  - Haemoglobin decreased [Unknown]
  - Injection site pain [Recovering/Resolving]
  - Ovarian mass [Unknown]
  - Palpitations [Unknown]
  - Malignant neoplasm progression [Unknown]
  - Headache [Unknown]
  - Heart rate increased [Unknown]
  - Pain [Unknown]
  - Dizziness [Unknown]
  - Lung neoplasm malignant [Unknown]
  - Cholelithiasis [Unknown]
  - Abdominal discomfort [Unknown]
  - Weight decreased [Unknown]
  - Asthenia [Unknown]

NARRATIVE: CASE EVENT DATE: 2014
